FAERS Safety Report 10038581 (Version 1)
Quarter: 2014Q1

REPORT INFORMATION
  Report Type: Spontaneous
  Country: US (occurrence: None)
  Receive Date: 20140306
  Receipt Date: 20140306
  Transmission Date: 20141002
  Serious: Yes (Other)
  Sender: FDA-Public Use
  Company Number: 163-21880-13013065

PATIENT
  Age: 69 Year
  Sex: Male

DRUGS (24)
  1. REVLIMID (LENALIDOMIDE) (10 MILLIGRAM, CAPSULES) [Suspect]
     Indication: PLASMA CELL MYELOMA
     Dosage: 21 IN 28 D
     Route: 048
     Dates: start: 20120121
  2. DIAZEPAM (DIAZEPAM) [Concomitant]
  3. DEXAMETHASONE (DEXAMETHASONE) [Concomitant]
  4. NITROSTAT (GLYCERYL TRINITRATE) [Concomitant]
  5. LYRICA (PREGABALIN) [Concomitant]
  6. ONDANSETRON (ONDANSETRON) [Concomitant]
  7. LANSOPRAZOLE (LANSOPRAZOLE) [Concomitant]
  8. LISINOPRIL (LISINOPRIL) [Concomitant]
  9. METOPROLOL (METOPROLOL) [Concomitant]
  10. OMEPRAZOLE (OMEPRAZOLE) [Concomitant]
  11. HYDROMORPHONE (HYDROMORPHONE) [Concomitant]
  12. ENOXAPARIN (ENOXAPARIN) [Concomitant]
  13. IBUPROFEN (IBUPROFEN) [Concomitant]
  14. CEFUROXIME (CEFUROXIME) [Concomitant]
  15. OXYCONTIN (OXYCODONE HYDROCHLORIDE) [Concomitant]
  16. PLAVIX (CLOPIDOGREL SULFATE) [Suspect]
  17. ASA (ACETYLSALICYLIC ACID) [Concomitant]
  18. CLARITHROMYCIN (CLARITHROMYCIN) [Concomitant]
  19. GABAPENTIN (GABAPENTIN) [Concomitant]
  20. PRAVASTATIN (PRAVASTATIN) [Concomitant]
  21. ZYRTEC (CETIRIZINE HYDROCHLORIDE) [Concomitant]
  22. TYLENOL (PARACETAMOL) [Concomitant]
  23. MULTIVITAMINS (MULTIVITAMINS) [Concomitant]
  24. VITAMIN D (ERGOCALCIFEROL) [Concomitant]

REACTIONS (2)
  - Blood immunoglobulin A increased [None]
  - Red blood cell count decreased [None]
